FAERS Safety Report 8436957-1 (Version None)
Quarter: 2012Q2

REPORT INFORMATION
  Report Type: 
  Country: None (occurrence: None)
  Receive Date: 20120614
  Receipt Date: 20120328
  Transmission Date: 20120825
  Serious: No
  Sender: FDA-Public Use
  Company Number: US-AMGEN-USASP2010007422

PATIENT
  Age: 43 Year
  Sex: Female
  Weight: 49 kg

DRUGS (18)
  1. ARANESP [Suspect]
     Indication: IRON DEFICIENCY ANAEMIA
     Dosage: UNK
     Route: 042
     Dates: start: 20111115
  2. PULMICORT [Concomitant]
     Dosage: 0.5 MG, BID
  3. RAPAMUNE [Concomitant]
     Dosage: 9 MG, UNK
     Route: 048
  4. CREON [Concomitant]
     Dosage: 24000 IU, UNK
  5. CALTRATE +D                        /01483701/ [Concomitant]
     Dosage: UNK UNK, BID
     Route: 048
  6. ROCALTROL [Concomitant]
     Dosage: 0.25 MUG, QD
  7. NOVOLOG [Concomitant]
  8. FE                                 /00023514/ [Concomitant]
     Dosage: 325 MG, BID
     Route: 048
  9. FOLVITE                            /00024201/ [Concomitant]
     Dosage: 1 MG, QD
  10. PROVENTIL                          /00139501/ [Concomitant]
     Dosage: 1.25 MG, Q6H
  11. DELTASONE                          /00044701/ [Concomitant]
     Dosage: 2.5 MG, QD
     Route: 048
  12. SODIUM BICARBONATE [Suspect]
     Dosage: 650 MG, 2 TIMES/WK
     Route: 048
  13. MAGNESIUM [Concomitant]
     Dosage: 400 MG, BID
     Route: 048
  14. VITAMIN D                          /00318501/ [Concomitant]
     Dosage: 50000 MG, QMO
     Route: 048
  15. MYFORTIC [Concomitant]
     Dosage: 360 MG, BID
     Route: 048
  16. ADVAIR DISKUS 100/50 [Concomitant]
     Dosage: UNK UNK, Q12H
  17. PRINIVIL [Concomitant]
     Dosage: 10 MG, QD
     Route: 048
  18. MEGACE [Concomitant]
     Dosage: 20 MG, QD
     Route: 048

REACTIONS (3)
  - LIP SWELLING [None]
  - LATEX ALLERGY [None]
  - PRURITUS [None]
